FAERS Safety Report 9940193 (Version 2)
Quarter: 2014Q2

REPORT INFORMATION
  Report Type: Report from Study
  Country: CA (occurrence: CA)
  Receive Date: 20140303
  Receipt Date: 20140416
  Transmission Date: 20141212
  Serious: Yes (Other)
  Sender: FDA-Public Use
  Company Number: CA-JNJFOC-20140216622

PATIENT
  Age: 18 Year
  Sex: Male
  Weight: 98.5 kg

DRUGS (4)
  1. REMICADE [Suspect]
     Indication: CROHN^S DISEASE
     Route: 042
     Dates: start: 20130604
  2. IMURAN [Concomitant]
     Route: 065
  3. TECTA [Concomitant]
     Route: 065
  4. PREDNISONE [Concomitant]
     Route: 065

REACTIONS (3)
  - Volvulus [Recovering/Resolving]
  - Dehydration [Recovering/Resolving]
  - Crohn^s disease [Unknown]
